FAERS Safety Report 6180938-8 (Version None)
Quarter: 2009Q2

REPORT INFORMATION
  Report Type: 
  Country: None (occurrence: None)
  Receive Date: 20090506
  Receipt Date: 20090429
  Transmission Date: 20091009
  Serious: Yes (Hospitalization)
  Sender: FDA-Public Use
  Company Number: US-BIOGENIDEC-2009BI008233

PATIENT
  Age: 57 Year
  Sex: Female

DRUGS (11)
  1. TYSABRI [Suspect]
     Indication: MULTIPLE SCLEROSIS
     Route: 042
     Dates: start: 20080808
  2. BACLOFEN [Concomitant]
     Indication: MUSCLE SPASTICITY
  3. TIZANIDINE HCL [Concomitant]
     Indication: MUSCLE SPASTICITY
  4. HYDROCODONE BITARTRATE [Concomitant]
     Indication: PAIN
  5. PROVIGIL [Concomitant]
     Indication: FATIGUE
  6. TRILEPTAL [Concomitant]
     Indication: MUSCLE SPASMS
  7. VITAMIN B-12 [Concomitant]
     Indication: ROUTINE HEALTH MAINTENANCE
  8. CELEXA [Concomitant]
     Indication: DEPRESSION
  9. SKELAXIN [Concomitant]
     Indication: MUSCLE SPASMS
  10. DITROPAN [Concomitant]
     Indication: INCONTINENCE
  11. HEPARIN [Concomitant]
     Indication: THROMBOSIS PROPHYLAXIS
     Route: 058

REACTIONS (2)
  - MUSCLE SPASTICITY [None]
  - OVERDOSE [None]
